FAERS Safety Report 8158990-X (Version None)
Quarter: 2012Q1

REPORT INFORMATION
  Report Type: 
  Country: None (occurrence: None)
  Receive Date: 20120223
  Receipt Date: 20120217
  Transmission Date: 20120608
  Serious: No
  Sender: FDA-Public Use
  Company Number: US-PFIZER INC-2012045231

PATIENT
  Sex: Female

DRUGS (12)
  1. ACETYLSALICYLIC ACID SRT [Suspect]
     Dosage: UNK
  2. ERYTHROMYCIN [Suspect]
     Dosage: UNK
  3. PERCODAN-DEMI [Suspect]
     Dosage: UNK
  4. CODEINE SULFATE [Suspect]
     Dosage: UNK
  5. SKELAXIN [Suspect]
     Dosage: UNK
  6. BENZOCAINE [Suspect]
     Dosage: UNK
  7. VICODIN [Suspect]
     Dosage: UNK
  8. MORPHINE SULFATE [Suspect]
     Dosage: UNK
  9. ZITHROMAX [Suspect]
     Dosage: UNK
  10. TIGAN [Suspect]
     Dosage: UNK
  11. PERCOCET [Suspect]
     Dosage: UNK
  12. KEFLEX [Suspect]
     Dosage: UNK

REACTIONS (1)
  - DRUG HYPERSENSITIVITY [None]
